FAERS Safety Report 4798134-5 (Version None)
Quarter: 2005Q4

REPORT INFORMATION
  Report Type: 
  Country: None (occurrence: None)
  Receive Date: 20051014
  Receipt Date: 20050923
  Transmission Date: 20060501
  Serious: Yes (Other)
  Sender: FDA-Public Use
  Company Number: US-BOEHRINGER INGELHEIM PHARMACEUTICALS, INC.-2005-BP-16951BP

PATIENT
  Age: 77 Year
  Sex: Male

DRUGS (1)
  1. FLOMAX [Suspect]
     Route: 048
     Dates: start: 20040105, end: 20050104

REACTIONS (4)
  - CATARACT OPERATION [None]
  - IRIS DISORDER [None]
  - IRIS HYPOPIGMENTATION [None]
  - POST PROCEDURAL COMPLICATION [None]
